FAERS Safety Report 16384497 (Version 1)
Quarter: 2019Q2

REPORT INFORMATION
  Report Type: Spontaneous
  Country: NL (occurrence: NL)
  Receive Date: 20190603
  Receipt Date: 20190603
  Transmission Date: 20190711
  Serious: Yes (Other)
  Sender: FDA-Public Use
  Company Number: NL-SCILEX PHARMACEUTICALS INC.-2019SCX00043

PATIENT
  Age: 51 Year
  Sex: Female

DRUGS (2)
  1. LIDOCAINE. [Suspect]
     Active Substance: LIDOCAINE
     Indication: LOCAL ANAESTHESIA
     Dosage: 20 MG/ML
     Route: 058
  2. ADRENALINE [Concomitant]
     Active Substance: EPINEPHRINE

REACTIONS (1)
  - Dermatitis contact [Recovering/Resolving]
